FAERS Safety Report 18261200 (Version 1)
Quarter: 2020Q3

REPORT INFORMATION
  Report Type: Spontaneous
  Country: FR (occurrence: FR)
  Receive Date: 20200914
  Receipt Date: 20200914
  Transmission Date: 20201103
  Serious: Yes (Other)
  Sender: FDA-Public Use
  Company Number: FR-B.I. PHARMACEUTICALS,INC./RIDGEFIELD-2020-BI-045712

PATIENT
  Age: 55 Year
  Sex: Male

DRUGS (1)
  1. GILOTRIF [Suspect]
     Active Substance: AFATINIB
     Indication: NEOPLASM MALIGNANT
     Route: 048
     Dates: start: 20200412

REACTIONS (3)
  - Palmar-plantar erythrodysaesthesia syndrome [Not Recovered/Not Resolved]
  - Malaise [Not Recovered/Not Resolved]
  - Gastrooesophageal reflux disease [Not Recovered/Not Resolved]

NARRATIVE: CASE EVENT DATE: 20200509
